FAERS Safety Report 5941478-1 (Version None)
Quarter: 2008Q4

REPORT INFORMATION
  Report Type: 
  Country: None (occurrence: None)
  Receive Date: 20081103
  Receipt Date: 20081103
  Transmission Date: 20090506
  Serious: No
  Sender: FDA-Public Use
  Company Number: None

PATIENT
  Age: 48 Year
  Sex: Male
  Weight: 83.0083 kg

DRUGS (2)
  1. VIAGRA [Suspect]
     Dosage: 1 ONCE PO
     Route: 048
     Dates: start: 20081010, end: 20081010
  2. METHYLPREDNISOLONE 16MG TAB [Concomitant]

REACTIONS (1)
  - DEAFNESS NEUROSENSORY [None]
